FAERS Safety Report 19376562 (Version 1)
Quarter: 2021Q2

REPORT INFORMATION
  Report Type: Spontaneous
  Country: RU (occurrence: RU)
  Receive Date: 20210604
  Receipt Date: 20210604
  Transmission Date: 20210717
  Serious: Yes (Other)
  Sender: FDA-Public Use
  Company Number: RU-009507513-2106RUS000920

PATIENT
  Age: 54 Year
  Sex: Male

DRUGS (3)
  1. INSULINE GLARGINE [Concomitant]
     Active Substance: INSULIN GLARGINE
     Dosage: 10 ME PER DAY
  2. KEYTRUDA [Suspect]
     Active Substance: PEMBROLIZUMAB
     Indication: HEPATOCELLULAR CARCINOMA
     Dosage: 200 MILLIGRAM, QD
     Dates: start: 20210114
  3. INSULIN GLULISINE [Concomitant]
     Active Substance: INSULIN GLULISINE
     Dosage: 14 ME PER DAY

REACTIONS (2)
  - Diabetes mellitus inadequate control [Unknown]
  - Product use issue [Unknown]

NARRATIVE: CASE EVENT DATE: 20210114
